FAERS Safety Report 9371437 (Version 1)
Quarter: 2013Q4

REPORT INFORMATION
  Report Type: Spontaneous
  Country: US (occurrence: None)
  Receive Date: 20130626
  Receipt Date: 20130626
  Transmission Date: 20140711
  Serious: Yes (Hospitalization)
  Sender: FDA-Public Use
  Company Number: None

PATIENT
  Age: 63 Year
  Sex: Male
  Weight: 70.31 kg

DRUGS (14)
  1. BORTEZOMIB [Suspect]
     Indication: ACUTE MYELOID LEUKAEMIA
     Dates: start: 20130614
  2. LIPOSOMAL DOXORUBICIN [Suspect]
     Indication: ACUTE MYELOID LEUKAEMIA
     Dates: start: 20130617
  3. ZOVIRAX [Concomitant]
  4. CIPRO [Concomitant]
  5. DIFLUCAN [Concomitant]
  6. ATIVAN [Concomitant]
  7. HEXAVITAMIN [Concomitant]
  8. ZOFRAN [Concomitant]
  9. PROTONIX [Concomitant]
  10. DILANTIN [Concomitant]
  11. COMPAZINE [Concomitant]
  12. DEPAKENE [Concomitant]
  13. BORTEZOMIB [Concomitant]
  14. LIPOSOMAL DOXORUBICIN [Concomitant]

REACTIONS (1)
  - Colitis [None]
